FAERS Safety Report 8935632 (Version 1)
Quarter: 2012Q4

REPORT INFORMATION
  Report Type: 
  Country: DE (occurrence: DE)
  Receive Date: 20121130
  Receipt Date: 20121130
  Transmission Date: 20130627
  Serious: Yes (Hospitalization)
  Sender: FDA-Public Use
  Company Number: DE-PFIZER INC-DE-WYE-G03410809

PATIENT
  Age: 38 Year
  Sex: Male
  Weight: 77 kg

DRUGS (2)
  1. IBUPROFEN [Suspect]
     Indication: UPPER RESPIRATORY TRACT INFECTION
     Dosage: 1 DF, 1x/day
     Route: 048
     Dates: start: 20090309, end: 20090310
  2. GRIPPOSTAD [Concomitant]
     Dosage: UNK
     Dates: start: 20090309

REACTIONS (7)
  - Palpitations [Recovered/Resolved]
  - Vertigo [Recovered/Resolved]
  - Tachycardia [Recovered/Resolved]
  - Blood pressure increased [Recovered/Resolved]
  - Presyncope [Recovered/Resolved]
  - Chest discomfort [Recovered/Resolved]
  - Dizziness [Recovered/Resolved]
